FAERS Safety Report 12181059 (Version 1)
Quarter: 2016Q1

REPORT INFORMATION
  Report Type: Spontaneous
  Country: TR (occurrence: TR)
  Receive Date: 20160315
  Receipt Date: 20160315
  Transmission Date: 20160526
  Serious: Yes (Other)
  Sender: FDA-Public Use
  Company Number: TR-JNJFOC-20160312950

PATIENT
  Age: 42 Year
  Sex: Female

DRUGS (1)
  1. INFLIXIMAB, RECOMBINANT [Suspect]
     Active Substance: INFLIXIMAB
     Indication: TAKAYASU^S ARTERITIS
     Route: 042

REACTIONS (3)
  - Product use issue [Unknown]
  - Intestinal tuberculosis [Unknown]
  - Off label use [Unknown]
